FAERS Safety Report 21009778 (Version 1)
Quarter: 2022Q2

REPORT INFORMATION
  Report Type: Spontaneous
  Country: US (occurrence: US)
  Receive Date: 20220627
  Receipt Date: 20220627
  Transmission Date: 20220720
  Serious: No
  Sender: FDA-Public Use
  Company Number: US-DENDREON PHARMACEUTICAL LLC-2021DEN000233

PATIENT

DRUGS (6)
  1. PROVENGE [Suspect]
     Active Substance: SIPULEUCEL-T
     Indication: Prostate cancer metastatic
  2. DOCETAXEL [Suspect]
     Active Substance: DOCETAXEL
     Indication: Prostate cancer metastatic
  3. ZYTIGA [Suspect]
     Active Substance: ABIRATERONE ACETATE
     Indication: Prostate cancer metastatic
  4. XOFIGO [Suspect]
     Active Substance: RADIUM RA-223 DICHLORIDE
  5. CABAZITAXEL [Suspect]
     Active Substance: CABAZITAXEL
  6. OLAPARIB [Suspect]
     Active Substance: OLAPARIB

REACTIONS (1)
  - Disease progression [Not Recovered/Not Resolved]
